FAERS Safety Report 10774142 (Version 1)
Quarter: 2015Q1

REPORT INFORMATION
  Report Type: Spontaneous
  Country: US (occurrence: US)
  Receive Date: 20150208
  Receipt Date: 20150208
  Transmission Date: 20150721
  Serious: Yes (Hospitalization)
  Sender: FDA-Public Use
  Company Number: US-AMGEN-USASP2015010424

PATIENT
  Age: 56 Year
  Sex: Female

DRUGS (1)
  1. ENBREL [Suspect]
     Active Substance: ETANERCEPT
     Indication: ANKYLOSING SPONDYLITIS
     Dosage: UNK UNK, EVERY FIVE DAYS
     Route: 065
     Dates: start: 2004

REACTIONS (2)
  - Intentional product misuse [Not Recovered/Not Resolved]
  - Ovarian mass [Recovered/Resolved]

NARRATIVE: CASE EVENT DATE: 2004
